FAERS Safety Report 12438010 (Version 2)
Quarter: 2016Q2

REPORT INFORMATION
  Report Type: Spontaneous
  Country: FR (occurrence: FR)
  Receive Date: 20160606
  Receipt Date: 20160607
  Transmission Date: 20160815
  Serious: Yes (Hospitalization, Other)
  Sender: FDA-Public Use
  Company Number: FR-PFIZER INC-2016281304

PATIENT
  Age: 48 Year
  Sex: Male

DRUGS (5)
  1. HUMALOG [Concomitant]
     Active Substance: INSULIN LISPRO
     Dosage: UNK
  2. STILNOX [Concomitant]
     Active Substance: ZOLPIDEM TARTRATE
     Dosage: 1X/DAY
  3. CREON [Concomitant]
     Active Substance: PANCRELIPASE AMYLASE\PANCRELIPASE LIPASE\PANCRELIPASE PROTEASE
     Dosage: 3X/DAY
  4. XANAX [Suspect]
     Active Substance: ALPRAZOLAM
     Dosage: SINGLE (IN ONE SINGLE INTAKE IN LARGE QUANTITY )
     Route: 048
     Dates: start: 20160519, end: 20160519
  5. DEPAKINE CHRONO 500 [Concomitant]
     Dosage: 2X/DAY

REACTIONS (7)
  - Coma [Recovered/Resolved]
  - Pneumonia aspiration [Unknown]
  - Vomiting [Unknown]
  - Toxicity to various agents [Unknown]
  - Overdose [Unknown]
  - Somnolence [Unknown]
  - Bradypnoea [Unknown]

NARRATIVE: CASE EVENT DATE: 201605
